FAERS Safety Report 10443960 (Version 1)
Quarter: 2014Q3

REPORT INFORMATION
  Report Type: Spontaneous
  Country: ES (occurrence: None)
  Receive Date: 20140908
  Receipt Date: 20140908
  Transmission Date: 20150326
  Serious: Yes (Other)
  Sender: FDA-Public Use
  Company Number: NL01PV14.37082

PATIENT
  Age: 44 Year
  Sex: Male

DRUGS (12)
  1. CLOPIDOGREL [Concomitant]
     Active Substance: CLOPIDOGREL BISULFATE
  2. RITUXIMAB [Concomitant]
     Active Substance: RITUXIMAB
  3. IMMUNOGLOBULIN (IMMUNOGLOBULIN HUMAN NORMAL) [Concomitant]
  4. MIDAZOLAM [Suspect]
     Active Substance: MIDAZOLAM\MIDAZOLAM HYDROCHLORIDE
     Indication: STIFF PERSON SYNDROME
     Dosage: 1 MG, UNK, INTRAVENOUS
     Route: 042
  5. BOLUTLINUM TOXIN TYPE A (BOTULINUM TOXIN TYPE A) [Concomitant]
  6. CLONAZEPAM. [Suspect]
     Active Substance: CLONAZEPAM
     Indication: STIFF PERSON SYNDROME
     Dosage: 10 MG, UNK, ORAL
     Route: 048
  7. ZOLPIDEM [Suspect]
     Active Substance: ZOLPIDEM\ZOLPIDEM TARTRATE
     Indication: STIFF PERSON SYNDROME
  8. PROPOFOL. [Suspect]
     Active Substance: PROPOFOL
     Indication: ANAESTHESIA
     Dosage: 150 MG, UNK (DOSAGE UP TO 150 MG), INTRAVENOUS
     Route: 042
  9. BACLOFEN (BACLOFEN) [Suspect]
     Active Substance: BACLOFEN
     Indication: STIFF PERSON SYNDROME
     Dosage: UNK
  10. FENTANYL (FENTANYL) [Suspect]
     Active Substance: FENTANYL
     Indication: ANAESTHESIA
     Dosage: 50 MG, UNK, INTRAVENOUS
     Route: 042
  11. PREGABALIN (PREGABALIN) [Suspect]
     Active Substance: PREGABALIN
     Indication: STIFF PERSON SYNDROME
     Dosage: 600 MG, UNK, ORAL
     Route: 048
  12. ACTYLSALICYLIC ACID [Concomitant]

REACTIONS (2)
  - Respiratory depression [None]
  - Drug interaction [None]
